FAERS Safety Report 7237833-2 (Version None)
Quarter: 2011Q1

REPORT INFORMATION
  Report Type: 
  Country: None (occurrence: None)
  Receive Date: 20110113
  Receipt Date: 20101229
  Transmission Date: 20110831
  Serious: Yes (Other)
  Sender: FDA-Public Use
  Company Number: AUR-APL-2011-00009

PATIENT
  Age: 73 Year
  Sex: Female

DRUGS (4)
  1. METFORMIN 850MG TABLET [Suspect]
     Indication: DIABETES MELLITUS
     Dosage: ^2 DF^ - BID - ORAL
     Route: 048
     Dates: start: 20100915, end: 20101013
  2. COUMADIN [Suspect]
     Indication: CARDIAC VALVE PROSTHESIS USER
     Dosage: ^28750 MG MCG WEEKS^PO
     Route: 048
     Dates: start: 20080723, end: 20101013
  3. SIRDALUD (TIZANIDINE) 2MG TABLETS [Suspect]
     Indication: MUSCLE SPASMS
     Dosage: ^2 DF^ - BID - ORAL
     Route: 048
     Dates: start: 20101008, end: 20101013
  4. DIAMICRON (GLICLAZIDE) 30MG TABLET [Suspect]
     Indication: DIABETES MELLITUS
     Dosage: 1 TABLET - QD - ORAL
     Route: 048
     Dates: start: 20100915, end: 20101013

REACTIONS (1)
  - INTERNATIONAL NORMALISED RATIO DECREASED [None]
